FAERS Safety Report 6149618-9 (Version None)
Quarter: 2009Q2

REPORT INFORMATION
  Report Type: 
  Country: None (occurrence: None)
  Receive Date: 20090409
  Receipt Date: 20090402
  Transmission Date: 20091009
  Serious: Yes (Hospitalization, Other)
  Sender: FDA-Public Use
  Company Number: US-NOVOPROD-285883

PATIENT
  Age: 64 Year
  Sex: Female

DRUGS (4)
  1. NOVOLOG [Suspect]
     Indication: DIABETES MELLITUS
     Dosage: 17 IU, TID
     Route: 058
     Dates: start: 20080101, end: 20090301
  2. NOVOLOG [Suspect]
     Dosage: 22 IU, TID
     Route: 058
     Dates: start: 20090301
  3. AMARYL [Concomitant]
     Indication: DIABETES MELLITUS
     Dosage: 4 MG, UNK
  4. LANTUS [Concomitant]
     Indication: DIABETES MELLITUS
     Dosage: 82 IU, QD
     Route: 058

REACTIONS (3)
  - BLOOD GLUCOSE INCREASED [None]
  - DRUG INEFFECTIVE [None]
  - FALL [None]
